FAERS Safety Report 23804200 (Version 2)
Quarter: 2024Q2

REPORT INFORMATION
  Report Type: Spontaneous
  Country: JP (occurrence: None)
  Receive Date: 20240501
  Receipt Date: 20240524
  Transmission Date: 20240716
  Serious: Yes (Other)
  Sender: FDA-Public Use
  Company Number: 2024A096553

PATIENT
  Age: 77 Year
  Sex: Male

DRUGS (4)
  1. IMFINZI [Suspect]
     Active Substance: DURVALUMAB
     Indication: Hepatocellular carcinoma
     Dosage: DOSE UNKNOWN UNKNOWN
     Route: 041
     Dates: start: 20231114
  2. IMJUDO [Suspect]
     Active Substance: TREMELIMUMAB\TREMELIMUMAB-ACTL
     Indication: Hepatocellular carcinoma
     Dosage: DOSE UNKNOWN
     Route: 041
     Dates: start: 20231114, end: 20231114
  3. HALCION [Concomitant]
     Active Substance: TRIAZOLAM
     Dosage: DOSE UNKNOWN
     Route: 065
  4. MIROGABALIN BESYLATE [Concomitant]
     Active Substance: MIROGABALIN BESYLATE
     Dosage: DOSE UNKNOWN
     Route: 065

REACTIONS (2)
  - Malignant neoplasm progression [Unknown]
  - Immune-mediated enterocolitis [Unknown]
